FAERS Safety Report 8964557 (Version 1)
Quarter: 2012Q4

REPORT INFORMATION
  Report Type: 
  Country: US (occurrence: US)
  Receive Date: 20121213
  Receipt Date: 20121213
  Transmission Date: 20130627
  Serious: Yes (Other)
  Sender: FDA-Public Use
  Company Number: US-JNJFOC-20121201597

PATIENT
  Age: 66 Year
  Sex: Male
  Weight: 64.86 kg

DRUGS (4)
  1. XARELTO [Suspect]
     Indication: CEREBROVASCULAR ACCIDENT PROPHYLAXIS
     Route: 048
     Dates: start: 201209
  2. XARELTO [Suspect]
     Indication: ATRIAL FIBRILLATION
     Route: 048
     Dates: start: 201209
  3. LIPITOR [Concomitant]
     Indication: BLOOD CHOLESTEROL INCREASED
     Route: 048
  4. BENICAR/HCTZ [Concomitant]
     Indication: HYPERTENSION
     Route: 048

REACTIONS (3)
  - Heart rate increased [Recovered/Resolved]
  - Aphthous stomatitis [Not Recovered/Not Resolved]
  - Gingival bleeding [Recovered/Resolved]
